FAERS Safety Report 9181444 (Version 3)
Quarter: 2014Q3

REPORT INFORMATION
  Report Type: Spontaneous
  Country: US (occurrence: US)
  Receive Date: 20130322
  Receipt Date: 20140805
  Transmission Date: 20150326
  Serious: Yes (Hospitalization, Other)
  Sender: FDA-Public Use
  Company Number: US-BAYER-2013-034477

PATIENT
  Age: 36 Year
  Sex: Female

DRUGS (13)
  1. ALEVE [NAPROXEN SODIUM,PSEUDOEPHEDRINE HYDROCHLORIDE] [Concomitant]
     Indication: SINUS HEADACHE
  2. OCELLA [Suspect]
     Active Substance: DROSPIRENONE\ETHINYL ESTRADIOL
  3. FIORINAL [CODEINE PHOSPHATE,DOXYLAMINE SUCCINATE,PARACETAMOL] [Concomitant]
     Dosage: UNK
     Dates: start: 20081126, end: 20081130
  4. TYLENOL [DIPHENHYDRAMINE HYDROCHLORIDE,PARACETAMOL] [Concomitant]
  5. YAZ [Suspect]
     Active Substance: DROSPIRENONE\ETHINYL ESTRADIOL
     Dosage: UNK
     Dates: start: 200711, end: 200911
  6. GIANVI [Suspect]
     Active Substance: DROSPIRENONE\ETHINYL ESTRADIOL
  7. DILAUDID [Concomitant]
     Active Substance: HYDROMORPHONE HYDROCHLORIDE
  8. ADVIL [Concomitant]
     Active Substance: IBUPROFEN
     Indication: MIGRAINE
     Dosage: UNK
     Dates: start: 20081126, end: 20081130
  9. PAMELOR [Concomitant]
     Active Substance: NORTRIPTYLINE HYDROCHLORIDE
     Dosage: UNK
     Dates: start: 20081130
  10. YASMIN [Suspect]
     Active Substance: DROSPIRENONE\ETHINYL ESTRADIOL
  11. FIORICET [Concomitant]
     Active Substance: ACETAMINOPHEN\BUTALBITAL\CAFFEINE
     Dosage: UNK
     Dates: start: 20081126, end: 20081130
  12. TORADOL [Concomitant]
     Active Substance: KETOROLAC TROMETHAMINE
  13. REGLAN [Concomitant]
     Active Substance: METOCLOPRAMIDE HYDROCHLORIDE

REACTIONS (2)
  - Transverse sinus thrombosis [Recovered/Resolved]
  - Venous thrombosis [None]

NARRATIVE: CASE EVENT DATE: 20081105
